FAERS Safety Report 5952128-2 (Version None)
Quarter: 2008Q4

REPORT INFORMATION
  Report Type: 
  Country: None (occurrence: None)
  Receive Date: 20081113
  Receipt Date: 20080520
  Transmission Date: 20090506
  Serious: No
  Sender: FDA-Public Use
  Company Number: A0728812A

PATIENT
  Age: 62 Year
  Sex: Female

DRUGS (4)
  1. COREG [Suspect]
     Route: 048
     Dates: start: 20080301
  2. STEROIDS [Concomitant]
  3. WARFARIN SODIUM [Concomitant]
  4. MULTIPLE MEDICATIONS [Concomitant]

REACTIONS (1)
  - BLOOD GLUCOSE FLUCTUATION [None]
